FAERS Safety Report 23836766 (Version 1)
Quarter: 2024Q2

REPORT INFORMATION
  Report Type: Spontaneous
  Country: FR (occurrence: FR)
  Receive Date: 20240509
  Receipt Date: 20240509
  Transmission Date: 20240716
  Serious: Yes (Other)
  Sender: FDA-Public Use
  Company Number: None

PATIENT
  Age: 81 Year
  Sex: Male

DRUGS (4)
  1. ETOPOSIDE [Suspect]
     Active Substance: ETOPOSIDE
     Indication: Marginal zone lymphoma
     Dosage: UNK
     Route: 042
     Dates: start: 20240110, end: 20240110
  2. CYCLOPHOSPHAMIDE [Suspect]
     Active Substance: CYCLOPHOSPHAMIDE
     Indication: Marginal zone lymphoma
     Dosage: 1260 MILLIGRAM C1D1
     Route: 042
     Dates: start: 20240110, end: 20240110
  3. RITUXIMAB [Suspect]
     Active Substance: RITUXIMAB
     Indication: Marginal zone lymphoma
     Dosage: 630 MILLIGRAM C1D1
     Route: 042
     Dates: start: 20240110, end: 20240110
  4. MESNA [Suspect]
     Active Substance: MESNA
     Indication: Prophylaxis
     Dosage: 1300 MILLIGRAM C1D1
     Route: 042
     Dates: start: 20240110, end: 20240110

REACTIONS (1)
  - Acute pulmonary oedema [Unknown]

NARRATIVE: CASE EVENT DATE: 20240114
